FAERS Safety Report 15765556 (Version 3)
Quarter: 2020Q1

REPORT INFORMATION
  Report Type: Spontaneous
  Country: US (occurrence: US)
  Receive Date: 20181227
  Receipt Date: 20200212
  Transmission Date: 20200409
  Serious: No
  Sender: FDA-Public Use
  Company Number: US-SA-2018SA389574

PATIENT
  Age: 45 Year
  Sex: Male

DRUGS (1)
  1. DUPIXENT [Suspect]
     Active Substance: DUPILUMAB
     Indication: DERMATITIS ATOPIC
     Dosage: 300 MG/2 ML, QOW
     Route: 058
     Dates: start: 20180821

REACTIONS (4)
  - Intraocular pressure increased [Unknown]
  - Arthralgia [Unknown]
  - Headache [Unknown]
  - Sensitive skin [Unknown]
